FAERS Safety Report 4917132-1 (Version None)
Quarter: 2006Q1

REPORT INFORMATION
  Report Type: 
  Country: None (occurrence: None)
  Receive Date: 20060214
  Receipt Date: 20060126
  Transmission Date: 20060701
  Serious: Yes (Other)
  Sender: FDA-Public Use
  Company Number: ES200602000347

PATIENT
  Age: 70 Year
  Sex: Female

DRUGS (2)
  1. RALOXIFENE HCL [Suspect]
     Indication: OSTEOPOROSIS
     Dosage: 60 MG, DAILY (1/D) , ORAL
     Route: 048
  2. LITHIUM [Concomitant]

REACTIONS (2)
  - DRUG INTERACTION [None]
  - HALLUCINATION [None]
